FAERS Safety Report 6065139-6 (Version None)
Quarter: 2009Q1

REPORT INFORMATION
  Report Type: 
  Country: None (occurrence: None)
  Receive Date: 20090204
  Receipt Date: 20090130
  Transmission Date: 20090719
  Serious: Yes (Hospitalization)
  Sender: FDA-Public Use
  Company Number: HK-AMGEN-US331085

PATIENT
  Sex: Male

DRUGS (4)
  1. PANITUMUMAB [Suspect]
     Indication: SQUAMOUS CELL CARCINOMA
     Route: 042
     Dates: start: 20081202, end: 20090113
  2. PANITUMUMAB - STUDY PROCEDURE [Suspect]
  3. RADIATION THERAPY [Concomitant]
     Dates: end: 20090116
  4. CISPLATIN [Concomitant]
     Route: 042
     Dates: end: 20090113

REACTIONS (1)
  - ODYNOPHAGIA [None]
